FAERS Safety Report 21275776 (Version 1)
Quarter: 2022Q3

REPORT INFORMATION
  Report Type: Spontaneous
  Country: US (occurrence: US)
  Receive Date: 20220831
  Receipt Date: 20220831
  Transmission Date: 20221027
  Serious: No
  Sender: FDA-Public Use
  Company Number: US-ABBVIE-22K-163-4234156-00

PATIENT
  Sex: Female
  Weight: 47.670 kg

DRUGS (5)
  1. HUMIRA [Suspect]
     Active Substance: ADALIMUMAB
     Indication: Off label use
     Route: 058
     Dates: start: 201710
  2. PFIZER-BIONTECH COVID-19 VACCINE [Concomitant]
     Active Substance: TOZINAMERAN
     Indication: COVID-19 immunisation
     Dosage: 1 DOSE
     Route: 030
     Dates: start: 20210411, end: 20210411
  3. PFIZER-BIONTECH COVID-19 VACCINE [Concomitant]
     Active Substance: TOZINAMERAN
     Dosage: 2 DOSE
     Route: 030
     Dates: start: 20210502, end: 20210502
  4. LEVOTHYROXINE [Concomitant]
     Active Substance: LEVOTHYROXINE
     Indication: Thyroid disorder
  5. MODERNA COVID-19 VACCINE [Concomitant]
     Active Substance: ELASOMERAN
     Indication: COVID-19 immunisation
     Dosage: 3 DOSE
     Route: 030
     Dates: start: 20211224, end: 20211224

REACTIONS (7)
  - Off label use [Unknown]
  - Haemorrhage [Unknown]
  - Acne [Not Recovered/Not Resolved]
  - Pruritus [Unknown]
  - Hypersensitivity [Not Recovered/Not Resolved]
  - Therapeutic product effect decreased [Unknown]
  - Adverse drug reaction [Unknown]

NARRATIVE: CASE EVENT DATE: 20170101
